FAERS Safety Report 6654381-9 (Version None)
Quarter: 2010Q1

REPORT INFORMATION
  Report Type: 
  Country: None (occurrence: None)
  Receive Date: 20100326
  Receipt Date: 20100316
  Transmission Date: 20100710
  Serious: Yes (Other)
  Sender: FDA-Public Use
  Company Number: JP-PFIZER INC-2010017069

PATIENT
  Age: 61 Year
  Sex: Female

DRUGS (7)
  1. ZOLOFT [Suspect]
     Indication: DEPRESSION
     Dosage: 25MG DAILY
     Route: 048
  2. ZOLOFT [Suspect]
     Dosage: 50MG DAILY
     Route: 048
  3. INHALED HUMAN INSULIN [Concomitant]
     Dosage: UNK
  4. THYRADIN-S [Concomitant]
     Route: 048
  5. ALOSENN [Concomitant]
     Route: 048
  6. MUCOSTA [Concomitant]
     Route: 048
  7. AMOBAN [Concomitant]
     Route: 048

REACTIONS (1)
  - BLOOD GLUCOSE DECREASED [None]
